FAERS Safety Report 18865584 (Version 1)
Quarter: 2021Q1

REPORT INFORMATION
  Report Type: Spontaneous
  Country: US (occurrence: US)
  Receive Date: 20210208
  Receipt Date: 20210208
  Transmission Date: 20210420
  Serious: Yes (Hospitalization)
  Sender: FDA-Public Use
  Company Number: None

PATIENT
  Sex: Female

DRUGS (11)
  1. BUMETANIDE. [Concomitant]
     Active Substance: BUMETANIDE
  2. FEBUXOSTAT. [Concomitant]
     Active Substance: FEBUXOSTAT
  3. MONTELUKAST [Concomitant]
     Active Substance: MONTELUKAST SODIUM
  4. OFLOXACIN. [Concomitant]
     Active Substance: OFLOXACIN
  5. ALENDRONATE [Concomitant]
     Active Substance: ALENDRONATE SODIUM
  6. FLUOXETINE [Concomitant]
     Active Substance: FLUOXETINE HYDROCHLORIDE
  7. ALBUTEROL AER [Concomitant]
     Active Substance: ALBUTEROL
  8. PREDNISOLONE. [Concomitant]
     Active Substance: PREDNISOLONE
  9. ELIQUIS [Concomitant]
     Active Substance: APIXABAN
  10. LEVOTHYROXIN [Concomitant]
     Active Substance: LEVOTHYROXINE
  11. TADALAFIL 20MG TAB [Suspect]
     Active Substance: TADALAFIL
     Indication: PULMONARY ARTERIAL HYPERTENSION
     Route: 048
     Dates: start: 20180903

REACTIONS (3)
  - Fall [None]
  - Hip fracture [None]
  - Femur fracture [None]
